FAERS Safety Report 8759230 (Version 2)
Quarter: 2018Q4

REPORT INFORMATION
  Report Type: Spontaneous
  Country: FR (occurrence: FR)
  Receive Date: 20120829
  Receipt Date: 20181220
  Transmission Date: 20190205
  Serious: Yes (Hospitalization, Other)
  Sender: FDA-Public Use
  Company Number: FR-ASTRAZENECA-2012SE60732

PATIENT
  Age: 788 Month
  Sex: Male

DRUGS (6)
  1. TOPALGIC (TRAMADOL HYDROCHLORIDE) [Suspect]
     Active Substance: TRAMADOL HYDROCHLORIDE
     Indication: PAIN
     Dosage: AS REQUIRED
     Route: 048
     Dates: start: 20120710, end: 20120712
  2. INNOHEP [Suspect]
     Active Substance: TINZAPARIN SODIUM
     Route: 058
     Dates: start: 20120704, end: 20120710
  3. INEXIUM [Suspect]
     Active Substance: ESOMEPRAZOLE
     Dosage: 40.0MG ONCE/SINGLE ADMINISTRATION
     Route: 042
     Dates: start: 20120703, end: 20120703
  4. IXPRIM [Suspect]
     Active Substance: ACETAMINOPHEN\TRAMADOL HYDROCHLORIDE
     Indication: PAIN
     Route: 048
     Dates: start: 20120704, end: 20120710
  5. CONTRAMAL [Suspect]
     Active Substance: TRAMADOL HYDROCHLORIDE
     Indication: PAIN
     Route: 042
     Dates: start: 20120626, end: 20120630
  6. INEXIUM (ORAL) [Suspect]
     Active Substance: ESOMEPRAZOLE
     Route: 048
     Dates: start: 20120704, end: 20120710

REACTIONS (3)
  - Eosinophilia [Recovering/Resolving]
  - Erythema multiforme [Recovering/Resolving]
  - Rash pustular [Recovering/Resolving]

NARRATIVE: CASE EVENT DATE: 201207
